FAERS Safety Report 12507428 (Version 2)
Quarter: 2016Q3

REPORT INFORMATION
  Report Type: Spontaneous
  Country: HR (occurrence: HR)
  Receive Date: 20160629
  Receipt Date: 20160803
  Transmission Date: 20161109
  Serious: Yes (Other)
  Sender: FDA-Public Use
  Company Number: HR-AMGEN-HRVSP2016081114

PATIENT
  Age: 41 Year
  Sex: Male

DRUGS (6)
  1. METHOTREXATE. [Concomitant]
     Active Substance: METHOTREXATE
     Indication: PSORIATIC ARTHROPATHY
     Dosage: 10 MG, WEEKLY
     Route: 048
  2. MEDROL [Concomitant]
     Active Substance: METHYLPREDNISOLONE
     Indication: PSORIATIC ARTHROPATHY
     Dosage: 8 MG, 1X/DAY
     Route: 048
  3. MEDROL [Concomitant]
     Active Substance: METHYLPREDNISOLONE
     Dosage: 8 MG, 1X/DAY
     Route: 048
  4. SALAZOPYRIN [Concomitant]
     Active Substance: SULFASALAZINE
     Dosage: 500 MG, 3X/DAY
     Route: 048
  5. SALAZOPYRIN [Concomitant]
     Active Substance: SULFASALAZINE
     Indication: PSORIATIC ARTHROPATHY
     Dosage: 500 MG, 3X/DAY
     Route: 048
  6. ENBREL [Suspect]
     Active Substance: ETANERCEPT
     Indication: PSORIATIC ARTHROPATHY
     Dosage: 50 MG, WEEKLY
     Route: 058

REACTIONS (3)
  - Loss of consciousness [Recovered/Resolved]
  - Syncope [Recovered/Resolved]
  - Eye movement disorder [Recovered/Resolved]

NARRATIVE: CASE EVENT DATE: 20160316
